FAERS Safety Report 13514722 (Version 3)
Quarter: 2019Q1

REPORT INFORMATION
  Report Type: Spontaneous
  Country: US (occurrence: US)
  Receive Date: 20170504
  Receipt Date: 20190318
  Transmission Date: 20190417
  Serious: Yes (Hospitalization, Other)
  Sender: FDA-Public Use
  Company Number: US-009507513-1704USA006519

PATIENT
  Age: 71 Year
  Sex: Male

DRUGS (4)
  1. INTRON A [Suspect]
     Active Substance: INTERFERON ALFA-2B
     Indication: MYCOSIS FUNGOIDES
     Dosage: 3MIU, TIW, SQ
     Route: 058
     Dates: start: 20170121
  2. INTRON A [Suspect]
     Active Substance: INTERFERON ALFA-2B
     Indication: MYCOSIS FUNGOIDES
     Dosage: 2 MIU, MONDAY, WEDNESDAY, FRIDAY, SUBCUTANEOUS
     Route: 058
     Dates: start: 20180409
  3. HYDROCODONE BITARTRATE (+) IBUPROFEN [Concomitant]
     Active Substance: HYDROCODONE BITARTRATE\IBUPROFEN
  4. HYDROCODONE [Concomitant]
     Active Substance: HYDROCODONE

REACTIONS (11)
  - Disturbance in attention [Recovered/Resolved]
  - Blood pressure increased [Unknown]
  - Headache [Unknown]
  - Product use in unapproved indication [Unknown]
  - Eye irritation [Unknown]
  - Insomnia [Unknown]
  - Fatigue [Recovered/Resolved]
  - Irritability [Unknown]
  - Aspiration [Unknown]
  - Fatigue [Unknown]
  - Visual impairment [Unknown]

NARRATIVE: CASE EVENT DATE: 20170121
